FAERS Safety Report 9973807 (Version 2)
Quarter: 2014Q1

REPORT INFORMATION
  Report Type: Report from Study
  Country: DE (occurrence: DE)
  Receive Date: 20140306
  Receipt Date: 20140306
  Transmission Date: 20141002
  Serious: Yes (Other)
  Sender: FDA-Public Use
  Company Number: PHHY2011DE70842

PATIENT
  Age: 46 Year
  Sex: Female

DRUGS (1)
  1. EXTAVIA [Suspect]
     Indication: MULTIPLE SCLEROSIS
     Dosage: 3 DF, QW
     Route: 058
     Dates: start: 20091204

REACTIONS (4)
  - Arrhythmia [Recovering/Resolving]
  - Hypertension [Recovering/Resolving]
  - Hypoaesthesia [Unknown]
  - Injection site erythema [Recovering/Resolving]
